FAERS Safety Report 5786586-3 (Version None)
Quarter: 2008Q2

REPORT INFORMATION
  Report Type: 
  Country: None (occurrence: None)
  Receive Date: 20080624
  Receipt Date: 20070703
  Transmission Date: 20081010
  Serious: No
  Sender: FDA-Public Use
  Company Number: US-ASTRAZENECA-2007UW15655

PATIENT
  Age: 79 Year
  Sex: Female
  Weight: 59 kg

DRUGS (6)
  1. PULMICORT FLEXHALER [Suspect]
     Indication: ASTHMA
     Dosage: 1 IH AM; 1 IH PM
     Route: 055
  2. PREDNISONE [Concomitant]
  3. COUMADIN [Concomitant]
  4. DIGITEK [Concomitant]
  5. LEXAPRO [Concomitant]
  6. XANAX [Concomitant]

REACTIONS (3)
  - DIZZINESS [None]
  - FATIGUE [None]
  - NECK PAIN [None]
